FAERS Safety Report 8811596 (Version 1)
Quarter: 2012Q4

REPORT INFORMATION
  Report Type: 
  Country: US (occurrence: US)
  Receive Date: 20120927
  Receipt Date: 20120927
  Transmission Date: 20130627
  Serious: No
  Sender: FDA-Public Use
  Company Number: US-BAYER-2012-100347

PATIENT
  Age: 79 Year
  Sex: Female

DRUGS (4)
  1. CIPRO [Suspect]
     Indication: CYSTITIS
     Dosage: UNK
     Route: 048
     Dates: start: 201206
  2. ACIFLEX [Concomitant]
  3. INDOMYCIN [Concomitant]
  4. ACETYLSALICYLIC ACID [Concomitant]
     Dosage: 81 mg, UNK

REACTIONS (3)
  - Pain in extremity [Not Recovered/Not Resolved]
  - Joint swelling [Not Recovered/Not Resolved]
  - Arthralgia [Not Recovered/Not Resolved]
